FAERS Safety Report 20334158 (Version 2)
Quarter: 2022Q1

REPORT INFORMATION
  Report Type: Spontaneous
  Country: US (occurrence: US)
  Receive Date: 20220113
  Receipt Date: 20220121
  Transmission Date: 20220423
  Serious: No
  Sender: FDA-Public Use
  Company Number: US-BIOGEN-2022BI01085754

PATIENT
  Age: 12 Year

DRUGS (1)
  1. SPINRAZA [Suspect]
     Active Substance: NUSINERSEN
     Indication: Product used for unknown indication
     Route: 065

REACTIONS (2)
  - Nasopharyngitis [Not Recovered/Not Resolved]
  - Exposure to SARS-CoV-2 [Unknown]

NARRATIVE: CASE EVENT DATE: 20220101
